FAERS Safety Report 12742379 (Version 1)
Quarter: 2016Q3

REPORT INFORMATION
  Report Type: Spontaneous
  Country: US (occurrence: US)
  Receive Date: 20160914
  Receipt Date: 20160914
  Transmission Date: 20161109
  Serious: Yes (Other)
  Sender: FDA-Public Use
  Company Number: None

PATIENT

DRUGS (1)
  1. ROCURONIUM [Suspect]
     Active Substance: ROCURONIUM BROMIDE
     Indication: ENDOTRACHEAL INTUBATION
     Dates: start: 20160802, end: 20160907

REACTIONS (4)
  - Hypotension [None]
  - Product measured potency issue [None]
  - Bradycardia [None]
  - Drug effect decreased [None]

NARRATIVE: CASE EVENT DATE: 20160907
